FAERS Safety Report 6160059-0 (Version None)
Quarter: 2009Q2

REPORT INFORMATION
  Report Type: 
  Country: None (occurrence: None)
  Receive Date: 20090420
  Receipt Date: 20090412
  Transmission Date: 20091009
  Serious: Yes (Death, Hospitalization)
  Sender: FDA-Public Use
  Company Number: NL-CELGENEUS-114-C5013-09040608

PATIENT
  Sex: Male

DRUGS (2)
  1. CC-5013 [Suspect]
     Route: 048
     Dates: start: 20070507
  2. CC-5013 [Suspect]
     Route: 048
     Dates: start: 20090320

REACTIONS (2)
  - ACUTE MYOCARDIAL INFARCTION [None]
  - PYREXIA [None]
